FAERS Safety Report 8791143 (Version 3)
Quarter: 2013Q2

REPORT INFORMATION
  Report Type: Spontaneous
  Country: GB (occurrence: None)
  Receive Date: 20120912
  Receipt Date: 20130524
  Transmission Date: 20140414
  Serious: Yes (Other)
  Sender: FDA-Public Use
  Company Number: AUR-APU-2012-03864

PATIENT
  Sex: Female

DRUGS (1)
  1. MIRTAZAPINE (MIRTAZAPINE) [Suspect]
     Indication: PRODUCT USED FOR UNKNOWN INDICATION

REACTIONS (12)
  - Withdrawal syndrome [None]
  - Sweating fever [None]
  - Dry throat [None]
  - Dysphagia [None]
  - Arthralgia [None]
  - Depressed mood [None]
  - Insomnia [None]
  - Decreased appetite [None]
  - Headache [None]
  - Eye swelling [None]
  - Suicidal ideation [None]
  - Nervous system disorder [None]
